FAERS Safety Report 5146937-X (Version None)
Quarter: 2006Q4

REPORT INFORMATION
  Report Type: 
  Country: None (occurrence: None)
  Receive Date: 20061109
  Receipt Date: 20061102
  Transmission Date: 20070319
  Serious: Yes (Other)
  Sender: FDA-Public Use
  Company Number: LV-NOVOPROD-258263

PATIENT
  Age: 5 Year
  Sex: Female

DRUGS (2)
  1. PROTAPHANE FLEXPEN [Suspect]
     Indication: DIABETES MELLITUS INSULIN-DEPENDENT
     Dosage: 10 IE, 6 IN THE MORNING, 4 IN THE EVENING
     Route: 058
     Dates: start: 20060901
  2. NOVORAPID PENFILL [Concomitant]
     Indication: DIABETES MELLITUS INSULIN-DEPENDENT
     Dosage: UNK, UNK
     Route: 058
     Dates: start: 20060901

REACTIONS (1)
  - INJECTION SITE NECROSIS [None]
